FAERS Safety Report 7948977-1 (Version None)
Quarter: 2011Q4

REPORT INFORMATION
  Report Type: 
  Country: None (occurrence: None)
  Receive Date: 20111125
  Receipt Date: 20111111
  Transmission Date: 20120403
  Serious: Yes (Other)
  Sender: FDA-Public Use
  Company Number: TPA2011A07640

PATIENT
  Age: 74 Year
  Sex: Male
  Weight: 87.5442 kg

DRUGS (4)
  1. METFORMIN (METFORMIN) [Concomitant]
  2. LOVASTATIN [Concomitant]
  3. ACTOS [Suspect]
     Indication: DIABETES MELLITUS
     Dosage: 45 MG, 1 IN 1 D, PER ORAL
     Route: 048
  4. GLYBURIDE [Concomitant]

REACTIONS (1)
  - BLADDER CANCER [None]
